FAERS Safety Report 8450033-3 (Version None)
Quarter: 2012Q2

REPORT INFORMATION
  Report Type: 
  Country: None (occurrence: None)
  Receive Date: 20120620
  Receipt Date: 20120612
  Transmission Date: 20120825
  Serious: Yes (Hospitalization)
  Sender: FDA-Public Use
  Company Number: JP-JNJFOC-20120608132

PATIENT
  Age: 80 Year
  Sex: Male

DRUGS (8)
  1. VOLTAREN [Concomitant]
     Indication: PRODUCT USED FOR UNKNOWN INDICATION
     Dosage: 2 TABLETS PER DAY, TWICE DAILY
     Route: 054
  2. RHUBARB [Concomitant]
     Indication: PRODUCT USED FOR UNKNOWN INDICATION
     Dosage: 2 TABLETS PER DAY, TWICE DAILY
     Route: 048
  3. YODEL [Concomitant]
     Indication: PRODUCT USED FOR UNKNOWN INDICATION
     Dosage: 2 TABLETS PER DAY, TWICE DAILY
     Route: 048
  4. MOTILIUM [Concomitant]
     Indication: PRODUCT USED FOR UNKNOWN INDICATION
     Dosage: 2 TABLETS PER DAY, TWICE DAILY
     Route: 048
  5. MUCOSTA [Concomitant]
     Indication: PRODUCT USED FOR UNKNOWN INDICATION
     Dosage: 2 TABLETS PER DAY, TWICE DAILY
     Route: 048
  6. TRAMADOL HCL [Suspect]
     Dosage: 2 TABLETS PER DAY, TWICE DAILY
     Route: 048
     Dates: start: 20120509, end: 20120522
  7. GABAPENTIN [Concomitant]
     Indication: PRODUCT USED FOR UNKNOWN INDICATION
     Dosage: 2 TABLETS PER DAY, TWICE DAILY
     Route: 048
  8. TRAMADOL HCL [Suspect]
     Indication: PRODUCT USED FOR UNKNOWN INDICATION
     Dosage: 4 TABLETS PER DAY, TWICE DAILY
     Route: 048
     Dates: start: 20120523

REACTIONS (1)
  - ILEUS [None]
